FAERS Safety Report 9836918 (Version 1)
Quarter: 2014Q1

REPORT INFORMATION
  Report Type: Spontaneous
  Country: US (occurrence: US)
  Receive Date: 20140123
  Receipt Date: 20140123
  Transmission Date: 20141002
  Serious: No
  Sender: FDA-Public Use
  Company Number: US-PFIZER INC-2014017244

PATIENT
  Sex: Female
  Weight: 111 kg

DRUGS (6)
  1. LYRICA [Suspect]
     Indication: MIGRAINE
     Dosage: 30 MG,2X/DAY
     Route: 048
     Dates: start: 201401
  2. LYRICA [Suspect]
     Indication: FIBROMYALGIA
     Dosage: 100 MG, 2X/DAY
     Route: 048
  3. SYNTHROID [Concomitant]
     Indication: HYPOTHYROIDISM
     Dosage: 200 UG, 1X/DAY
  4. MORPHINE SULFATE [Concomitant]
     Indication: PAIN
     Dosage: 10 MG, 3X/DAY
  5. MORPHINE SULFATE [Concomitant]
     Indication: ARTHRITIS
  6. CLONAZEPAM [Concomitant]
     Indication: TREMOR
     Dosage: 0.5 MG, 1X/DAY

REACTIONS (3)
  - Off label use [Unknown]
  - Intentional drug misuse [Unknown]
  - Drug ineffective [Unknown]
